FAERS Safety Report 4508453-5 (Version None)
Quarter: 2004Q4

REPORT INFORMATION
  Report Type: 
  Country: None (occurrence: None)
  Receive Date: 20041123
  Receipt Date: 20040219
  Transmission Date: 20050328
  Serious: Yes (Other)
  Sender: FDA-Public Use
  Company Number: US-GLAXOSMITHKLINE-A0498856A

PATIENT
  Sex: Female

DRUGS (3)
  1. WELLBUTRIN [Suspect]
     Indication: DEPRESSION
     Dosage: 150MG PER DAY
     Route: 048
     Dates: start: 20040202, end: 20040215
  2. THYROID MEDICATION [Concomitant]
  3. BUSPAR [Concomitant]

REACTIONS (7)
  - AMNESIA [None]
  - DRY MOUTH [None]
  - INSOMNIA [None]
  - PANIC ATTACK [None]
  - PETIT MAL EPILEPSY [None]
  - RESTLESSNESS [None]
  - TREMOR [None]
